FAERS Safety Report 25264249 (Version 3)
Quarter: 2025Q2

REPORT INFORMATION
  Report Type: Spontaneous
  Country: US (occurrence: US)
  Receive Date: 20250502
  Receipt Date: 20250624
  Transmission Date: 20250717
  Serious: No
  Sender: ABBVIE
  Company Number: US-ABBVIE-6260110

PATIENT

DRUGS (2)
  1. SAPHRIS [Suspect]
     Active Substance: ASENAPINE MALEATE
     Indication: Bipolar disorder
     Route: 048
     Dates: start: 2010, end: 2023
  2. SAPHRIS [Suspect]
     Active Substance: ASENAPINE MALEATE
     Indication: Bipolar disorder
     Route: 048
     Dates: start: 2023, end: 202504

REACTIONS (12)
  - Chest discomfort [Unknown]
  - Headache [Unknown]
  - Head discomfort [Unknown]
  - Chest pain [Recovered/Resolved]
  - Atrial fibrillation [Unknown]
  - Feeling abnormal [Unknown]
  - Insomnia [Unknown]
  - Dizziness [Unknown]
  - Pain [Unknown]
  - Movement disorder [Unknown]
  - Fatigue [Unknown]
  - Dyspnoea [Unknown]

NARRATIVE: CASE EVENT DATE: 20230101
